FAERS Safety Report 4333039-5 (Version None)
Quarter: 2004Q1

REPORT INFORMATION
  Report Type: 
  Country: None (occurrence: None)
  Receive Date: 20040330
  Receipt Date: 20040318
  Transmission Date: 20041129
  Serious: Yes (Hospitalization)
  Sender: FDA-Public Use
  Company Number: 2004205059GB

PATIENT
  Age: 50 Year
  Sex: Female

DRUGS (4)
  1. EPIRUBICIN [Suspect]
     Indication: BREAST CANCER
     Dosage: 170 MG, CYCLIC, CYCLE 2, IV
     Route: 042
     Dates: start: 20040114, end: 20040114
  2. PACLITAXEL [Suspect]
     Indication: BREAST CANCER
     Dosage: 325 MG, CYCLIC, CYCLE 1, IV
     Route: 042
     Dates: start: 20040203, end: 20040203
  3. CYCLOPHOSPHAMIDE [Suspect]
     Indication: BREAST CANCER
     Dosage: 1130 MG, CYCLIC, CYCLE 2, IV
     Route: 042
     Dates: start: 20040114, end: 20040114
  4. GEMCITABINE (GEMCITABINE) [Suspect]
     Indication: BREAST CANCER
     Dosage: 2300 MG, CYCLIC, CYCLE 1, IV
     Route: 042
     Dates: start: 20040203, end: 20040203

REACTIONS (10)
  - ASTHENIA [None]
  - BACK PAIN [None]
  - CHILLS [None]
  - DYSPNOEA [None]
  - HAEMOGLOBIN DECREASED [None]
  - LOWER RESPIRATORY TRACT INFECTION [None]
  - PLATELET COUNT DECREASED [None]
  - PULMONARY EMBOLISM [None]
  - PYREXIA [None]
  - WHITE BLOOD CELL COUNT INCREASED [None]
